FAERS Safety Report 7803911-X (Version None)
Quarter: 2011Q4

REPORT INFORMATION
  Report Type: 
  Country: None (occurrence: None)
  Receive Date: 20111010
  Receipt Date: 20110928
  Transmission Date: 20120403
  Serious: Yes (Hospitalization, Other)
  Sender: FDA-Public Use
  Company Number: IT-JNJFOC-20110902562

PATIENT
  Age: 46 Year
  Sex: Male

DRUGS (4)
  1. REMICADE [Suspect]
     Indication: PSORIATIC ARTHROPATHY
     Route: 042
     Dates: start: 20110531, end: 20110901
  2. REMICADE [Suspect]
     Route: 042
     Dates: start: 20110531, end: 20110901
  3. REMICADE [Suspect]
     Indication: PSORIASIS
     Route: 042
     Dates: start: 20080101, end: 20100801
  4. REMICADE [Suspect]
     Route: 042
     Dates: start: 20080101, end: 20100801

REACTIONS (9)
  - JOINT SWELLING [None]
  - NIGHT SWEATS [None]
  - LYMPHADENOPATHY [None]
  - WEIGHT DECREASED [None]
  - HYPERPYREXIA [None]
  - OSTEOARTHRITIS [None]
  - SPLENOMEGALY [None]
  - HODGKIN'S DISEASE [None]
  - STAPHYLOCOCCAL BACTERAEMIA [None]
